FAERS Safety Report 7544481-3 (Version None)
Quarter: 2011Q2

REPORT INFORMATION
  Report Type: 
  Country: None (occurrence: None)
  Receive Date: 20110613
  Receipt Date: 20110415
  Transmission Date: 20111010
  Serious: Yes (Death, Hospitalization, Other)
  Sender: FDA-Public Use
  Company Number: PHHY2009JP60292

PATIENT
  Sex: Female
  Weight: 44 kg

DRUGS (9)
  1. DIFLUCAN [Concomitant]
     Indication: MYELODYSPLASTIC SYNDROME
     Dosage: 200 MG, UNK
     Route: 048
     Dates: start: 20090217, end: 20090526
  2. EXJADE [Suspect]
     Indication: IRON OVERLOAD
     Dosage: 1000 MG DAILY
     Route: 048
     Dates: start: 20090217, end: 20090526
  3. EXJADE [Suspect]
     Indication: MYELODYSPLASTIC SYNDROME
  4. NEORAL [Concomitant]
     Indication: MYELODYSPLASTIC SYNDROME
     Dosage: 300 MG, UNK
     Route: 048
     Dates: start: 20090217, end: 20090228
  5. DESFERAL [Suspect]
     Dosage: 1000 MG, UNK
     Route: 030
     Dates: start: 20060725, end: 20090210
  6. RED BLOOD CELLS, LEUCOCYTE DEPLETED [Concomitant]
     Dosage: 2 UNITS EVERY WEEK
     Dates: start: 20060725, end: 20090723
  7. DESFERAL [Suspect]
     Dosage: UNK
     Route: 030
     Dates: start: 20090527, end: 20090625
  8. PRIMOBOLAN [Concomitant]
     Indication: MYELODYSPLASTIC SYNDROME
     Dosage: 45 MG, UNK
     Route: 048
     Dates: start: 20090217, end: 20090629
  9. SULFAMETHOXAZOLE [Concomitant]
     Indication: MYELODYSPLASTIC SYNDROME
     Dosage: 2 DF, UNK
     Route: 048
     Dates: start: 20090217, end: 20090629

REACTIONS (3)
  - INFECTION [None]
  - DISSEMINATED INTRAVASCULAR COAGULATION [None]
  - CEREBRAL HAEMORRHAGE [None]
